FAERS Safety Report 5450171-3 (Version None)
Quarter: 2007Q3

REPORT INFORMATION
  Report Type: 
  Country: None (occurrence: None)
  Receive Date: 20070912
  Receipt Date: 20070906
  Transmission Date: 20080115
  Serious: Yes (Other)
  Sender: FDA-Public Use
  Company Number: PHBS2007BR14720

PATIENT
  Sex: Female

DRUGS (2)
  1. TRILEPTAL [Suspect]
     Dosage: 4 BOXES / MONTH
  2. TRILEPTAL [Suspect]
     Dosage: 600 MG/DAY

REACTIONS (1)
  - CONVULSION [None]
